FAERS Safety Report 21270492 (Version 1)
Quarter: 2022Q3

REPORT INFORMATION
  Report Type: Spontaneous
  Country: PL (occurrence: PL)
  Receive Date: 20220830
  Receipt Date: 20220830
  Transmission Date: 20221026
  Serious: Yes (Other)
  Sender: FDA-Public Use
  Company Number: None

PATIENT
  Age: 51 Year
  Sex: Male
  Weight: 81 kg

DRUGS (3)
  1. IRINOTECAN [Suspect]
     Active Substance: IRINOTECAN
     Indication: Product used for unknown indication
     Dosage: ROA-20045000, DRIP INFUSION
     Route: 041
     Dates: start: 20211130, end: 20211130
  2. FLUOROURACIL [Suspect]
     Active Substance: FLUOROURACIL
     Indication: Product used for unknown indication
     Dosage: ROA-20045000
     Route: 040
     Dates: start: 20211130, end: 20211201
  3. FLUOROURACIL [Suspect]
     Active Substance: FLUOROURACIL
     Dosage: PUMP
     Route: 042
     Dates: start: 20211130, end: 20211202

REACTIONS (1)
  - Upper respiratory tract inflammation [Recovered/Resolved with Sequelae]

NARRATIVE: CASE EVENT DATE: 20211221
